FAERS Safety Report 8585644 (Version 16)
Quarter: 2017Q1

REPORT INFORMATION
  Report Type: Spontaneous
  Country: US (occurrence: US)
  Receive Date: 20120530
  Receipt Date: 20170306
  Transmission Date: 20170429
  Serious: Yes (Hospitalization, Other)
  Sender: FDA-Public Use
  Company Number: US-GLAXOSMITHKLINE-A0950342A

PATIENT
  Age: 47 Year
  Sex: Female
  Weight: 85 kg

DRUGS (21)
  1. FLOLAN [Suspect]
     Active Substance: EPOPROSTENOL SODIUM
     Dosage: UNK
  2. SILDENAFIL CITRATE. [Concomitant]
     Active Substance: SILDENAFIL CITRATE
  3. FLOLAN [Suspect]
     Active Substance: EPOPROSTENOL SODIUM
     Indication: COR PULMONALE CHRONIC
     Dosage: 13.5 DF, CO
     Route: 042
     Dates: start: 20100912
  4. FLOLAN [Suspect]
     Active Substance: EPOPROSTENOL SODIUM
     Dosage: 21 DF, CO
     Dates: start: 20170210
  5. FLOLAN [Suspect]
     Active Substance: EPOPROSTENOL SODIUM
     Dosage: 24 DF, CO
     Dates: start: 20101001
  6. FLOLAN [Suspect]
     Active Substance: EPOPROSTENOL SODIUM
     Dosage: 24 DF, CO
     Route: 042
     Dates: start: 20170112
  7. LETAIRIS [Concomitant]
     Active Substance: AMBRISENTAN
     Indication: PRODUCT USED FOR UNKNOWN INDICATION
     Route: 065
  8. REVATIO [Concomitant]
     Active Substance: SILDENAFIL CITRATE
  9. FLOLAN [Suspect]
     Active Substance: EPOPROSTENOL SODIUM
     Indication: PULMONARY HYPERTENSION
     Dosage: UNK
  10. SILDENAFIL. [Concomitant]
     Active Substance: SILDENAFIL
  11. FLOLAN [Suspect]
     Active Substance: EPOPROSTENOL SODIUM
     Dosage: 24 DF, CO
     Dates: start: 20101001
  12. FLOLAN [Suspect]
     Active Substance: EPOPROSTENOL SODIUM
     Indication: PULMONARY HYPERTENSION
     Dosage: UNK
  13. FLOLAN [Suspect]
     Active Substance: EPOPROSTENOL SODIUM
     Indication: SYSTEMIC LUPUS ERYTHEMATOSUS
     Dosage: UNK
  14. FLOLAN [Suspect]
     Active Substance: EPOPROSTENOL SODIUM
     Dosage: UNK
  15. FLOLAN [Suspect]
     Active Substance: EPOPROSTENOL SODIUM
     Dosage: 24 DF, CO
  16. FLOLAN [Suspect]
     Active Substance: EPOPROSTENOL SODIUM
     Dosage: 24 DF, CO
  17. FLOLAN [Suspect]
     Active Substance: EPOPROSTENOL SODIUM
     Dosage: 85 DF, CO
     Route: 042
  18. FLOLAN [Suspect]
     Active Substance: EPOPROSTENOL SODIUM
     Dosage: 24 DF, CO
     Route: 042
  19. FLOLAN [Suspect]
     Active Substance: EPOPROSTENOL SODIUM
     Dosage: 24 DF, CO
     Route: 042
  20. FLOLAN [Suspect]
     Active Substance: EPOPROSTENOL SODIUM
     Dosage: 23 DF, CO
  21. UPTRAVI [Suspect]
     Active Substance: SELEXIPAG
     Indication: PRODUCT USED FOR UNKNOWN INDICATION
     Dosage: UNK, U

REACTIONS (25)
  - Flushing [Unknown]
  - Fall [Unknown]
  - Central venous catheterisation [Unknown]
  - Catheter site pruritus [Unknown]
  - Headache [Not Recovered/Not Resolved]
  - Hospitalisation [Unknown]
  - Device related infection [Unknown]
  - Diarrhoea [Unknown]
  - Arthritis [Unknown]
  - Sepsis [Unknown]
  - Pneumonia [Unknown]
  - Pruritus [Unknown]
  - Dyspnoea [Not Recovered/Not Resolved]
  - Hypotension [Unknown]
  - Somnolence [Unknown]
  - Device issue [Unknown]
  - Back pain [Unknown]
  - Neck pain [Unknown]
  - Decreased appetite [Unknown]
  - Localised infection [Unknown]
  - Scratch [Unknown]
  - Influenza like illness [Unknown]
  - Weight increased [Unknown]
  - Fatigue [Unknown]
  - Pain in jaw [Unknown]

NARRATIVE: CASE EVENT DATE: 20110901
